FAERS Safety Report 19085574 (Version 2)
Quarter: 2021Q2

REPORT INFORMATION
  Report Type: Other
  Country: DE (occurrence: DE)
  Receive Date: 20210401
  Receipt Date: 20210610
  Transmission Date: 20210717
  Serious: Yes (Hospitalization, Other)
  Sender: FDA-Public Use
  Company Number: DE-CELLTRION INC.-2021DE004196

PATIENT

DRUGS (6)
  1. PREDNISOLON /00016201/ [Concomitant]
     Active Substance: PREDNISOLONE
     Dosage: 60 MILLIGRAM
  2. VEDOLIZUMAB [Suspect]
     Active Substance: VEDOLIZUMAB
     Indication: COLITIS ULCERATIVE
     Dosage: UNK
     Route: 042
     Dates: start: 20190821, end: 20191127
  3. AZATHIOPRINE. [Concomitant]
     Active Substance: AZATHIOPRINE
     Dosage: UNK
  4. INFLIXIMAB (UNKNOWN) [Suspect]
     Active Substance: INFLIXIMAB
     Indication: PRODUCT USED FOR UNKNOWN INDICATION
     Dosage: UNK
     Route: 065
     Dates: start: 20180314, end: 20190718
  5. INFLIXIMAB (UNKNOWN) [Suspect]
     Active Substance: INFLIXIMAB
     Dosage: UNK
     Route: 065
     Dates: start: 20201105
  6. INFLIXIMAB (UNKNOWN) [Suspect]
     Active Substance: INFLIXIMAB
     Dosage: UNK
     Route: 065
     Dates: start: 20191212

REACTIONS (3)
  - Cytomegalovirus infection [Recovered/Resolved]
  - Colitis ulcerative [Not Recovered/Not Resolved]
  - Clostridium difficile infection [Unknown]

NARRATIVE: CASE EVENT DATE: 20200716
